FAERS Safety Report 6414151-3 (Version None)
Quarter: 2009Q4

REPORT INFORMATION
  Report Type: 
  Country: None (occurrence: None)
  Receive Date: 20091026
  Receipt Date: 20091014
  Transmission Date: 20100525
  Serious: Yes (Hospitalization)
  Sender: FDA-Public Use
  Company Number: CO-PFIZER INC-2006105112

PATIENT
  Age: 78 Year

DRUGS (2)
  1. SUNITINIB MALATE [Suspect]
     Indication: RENAL CELL CARCINOMA
     Dosage: 50 MG, 1X/DAY
     Route: 048
     Dates: start: 20060621
  2. GLIBENCLAMIDE [Concomitant]
     Route: 048
     Dates: end: 20060828

REACTIONS (1)
  - HYPOGLYCAEMIA [None]
